FAERS Safety Report 7729784-1 (Version None)
Quarter: 2011Q3

REPORT INFORMATION
  Report Type: 
  Country: None (occurrence: None)
  Receive Date: 20110906
  Receipt Date: 20110831
  Transmission Date: 20111222
  Serious: Yes (Other)
  Sender: FDA-Public Use
  Company Number: CN-SANOFI-AVENTIS-2011SA056480

PATIENT
  Age: 51 Year
  Sex: Male

DRUGS (4)
  1. INVESTIGATIONAL DRUG [Suspect]
     Route: 048
     Dates: start: 20110608
  2. GLYCYRRHIZA GLABRA [Concomitant]
     Route: 048
     Dates: start: 20110613, end: 20110621
  3. ENOXAPARIN SODIUM [Suspect]
     Route: 058
     Dates: start: 20110608, end: 20110615
  4. SIMVASTATIN [Concomitant]
     Route: 048
     Dates: start: 20110603

REACTIONS (1)
  - INTERNATIONAL NORMALISED RATIO INCREASED [None]
